FAERS Safety Report 8295473-0 (Version None)
Quarter: 2012Q2

REPORT INFORMATION
  Report Type: 
  Country: None (occurrence: None)
  Receive Date: 20120418
  Receipt Date: 20120314
  Transmission Date: 20120825
  Serious: No
  Sender: FDA-Public Use
  Company Number: US-ASTRAZENECA-2012SE01959

PATIENT
  Age: 49 Year
  Sex: Female
  Weight: 88.5 kg

DRUGS (22)
  1. MYLANTA [Concomitant]
  2. CLARITIN [Concomitant]
     Indication: MULTIPLE ALLERGIES
  3. ZANTAC [Concomitant]
  4. PREVACID [Concomitant]
  5. PROVENTIL [Concomitant]
     Indication: CHRONIC OBSTRUCTIVE PULMONARY DISEASE
  6. PERCOCET [Concomitant]
     Indication: INTERVERTEBRAL DISC DEGENERATION
  7. NEXIUM [Suspect]
     Route: 048
     Dates: start: 20040101
  8. PROTONIX [Concomitant]
  9. MYSOLINE [Concomitant]
     Indication: ESSENTIAL TREMOR
  10. SINGULAIR [Concomitant]
     Indication: CHRONIC OBSTRUCTIVE PULMONARY DISEASE
  11. PRILOSEC OTC [Concomitant]
  12. LOPRESSOR [Concomitant]
     Indication: HYPERTENSION
  13. TOPAMAX [Concomitant]
     Indication: MIGRAINE
  14. MORPHINE [Concomitant]
     Indication: INTERVERTEBRAL DISC DEGENERATION
  15. DICLOFENAC [Concomitant]
     Indication: ARTHRITIS
  16. PRILOSEC [Suspect]
     Route: 048
  17. CLONIDINE [Concomitant]
     Indication: HYPERTENSION
  18. BETHANECHOL [Concomitant]
     Indication: DIURETIC THERAPY
  19. ULTRAM [Concomitant]
     Indication: INTERVERTEBRAL DISC DEGENERATION
  20. LIDODERM [Concomitant]
     Indication: INTERVERTEBRAL DISC DEGENERATION
  21. EFFEXOR [Concomitant]
  22. NEURONTIN [Concomitant]
     Indication: NEURALGIA

REACTIONS (6)
  - DYSPEPSIA [None]
  - BOWEL MOVEMENT IRREGULARITY [None]
  - DRUG DOSE OMISSION [None]
  - HYPERTENSION [None]
  - DRUG PRESCRIBING ERROR [None]
  - GASTROOESOPHAGEAL REFLUX DISEASE [None]
